FAERS Safety Report 7423229-7 (Version None)
Quarter: 2011Q2

REPORT INFORMATION
  Report Type: 
  Country: None (occurrence: None)
  Receive Date: 20110419
  Receipt Date: 20101221
  Transmission Date: 20111010
  Serious: Yes (Hospitalization, Other)
  Sender: FDA-Public Use
  Company Number: US-BAYER-201036030NA

PATIENT
  Age: 23 Year
  Sex: Female
  Weight: 63.492 kg

DRUGS (2)
  1. YASMIN [Suspect]
     Indication: CONTRACEPTION
     Route: 048
     Dates: start: 20090201, end: 20090801
  2. MOTRIN [Concomitant]
     Dosage: UNK UNK, PRN

REACTIONS (4)
  - CHEST PAIN [None]
  - PULMONARY EMBOLISM [None]
  - DYSPNOEA [None]
  - PLEURAL EFFUSION [None]
